FAERS Safety Report 9786949 (Version 1)
Quarter: 2013Q4

REPORT INFORMATION
  Report Type: Spontaneous
  Country: AU (occurrence: AU)
  Receive Date: 20131227
  Receipt Date: 20131227
  Transmission Date: 20140711
  Serious: Yes (Hospitalization)
  Sender: FDA-Public Use
  Company Number: AU-ABBVIE-13P-008-1181583-00

PATIENT
  Age: 75 Year
  Sex: 0

DRUGS (1)
  1. LUCRIN DEPOT [Suspect]
     Indication: PRODUCT USED FOR UNKNOWN INDICATION
     Dates: start: 20130603

REACTIONS (4)
  - Septic shock [Unknown]
  - Cellulitis [Unknown]
  - Gout [Unknown]
  - Localised infection [Unknown]
